FAERS Safety Report 24528584 (Version 1)
Quarter: 2024Q4

REPORT INFORMATION
  Report Type: Spontaneous
  Country: PT (occurrence: PT)
  Receive Date: 20241021
  Receipt Date: 20241021
  Transmission Date: 20250115
  Serious: Yes (Other)
  Sender: BAYER HEALTHCARE PHARMACEUTICALS INC.
  Company Number: PT-BAYER-2024A148111

PATIENT
  Sex: Male

DRUGS (2)
  1. NUBEQA [Suspect]
     Active Substance: DAROLUTAMIDE
     Indication: Hormone-dependent prostate cancer
     Dosage: UNK
  2. ENZALUTAMIDE [Concomitant]
     Active Substance: ENZALUTAMIDE
     Indication: Hormone-refractory prostate cancer
     Dosage: UNK

REACTIONS (4)
  - Dizziness [None]
  - Fall [None]
  - Prostatic specific antigen increased [None]
  - Prostate cancer metastatic [None]
